FAERS Safety Report 24715553 (Version 1)
Quarter: 2024Q4

REPORT INFORMATION
  Report Type: Spontaneous
  Country: FR (occurrence: FR)
  Receive Date: 20241210
  Receipt Date: 20241210
  Transmission Date: 20250115
  Serious: Yes (Hospitalization)
  Sender: CHEPLAPHARM
  Company Number: None

PATIENT
  Age: 7 Week
  Sex: Female
  Weight: 3.72 kg

DRUGS (12)
  1. CLONAZEPAM [Suspect]
     Active Substance: CLONAZEPAM
     Indication: Epilepsy
     Route: 042
     Dates: start: 20241025, end: 20241026
  2. CLONAZEPAM [Suspect]
     Active Substance: CLONAZEPAM
     Indication: Epilepsy
     Dosage: 1 DROP 4 TIMES A DAY
     Route: 048
     Dates: start: 20241026, end: 20241028
  3. VALIUM [Suspect]
     Active Substance: DIAZEPAM
     Indication: Epilepsy
     Route: 042
     Dates: start: 20241026, end: 20241026
  4. TROPICAMIDE [Suspect]
     Active Substance: TROPICAMIDE
     Indication: Fundoscopy
     Route: 047
     Dates: start: 20241025, end: 20241025
  5. MIDAZOLAM [Suspect]
     Active Substance: MIDAZOLAM
     Indication: Epilepsy
     Dosage: DAILY DOSE: 2.5 MILLIGRAM
     Route: 060
     Dates: start: 20241025, end: 20241026
  6. VALPROATE SODIUM [Suspect]
     Active Substance: VALPROATE SODIUM
     Indication: Sturge-Weber syndrome
     Dosage: DAILY DOSE: 80 MILLIGRAM
     Route: 048
     Dates: start: 20240919
  7. VALPROATE SODIUM [Suspect]
     Active Substance: VALPROATE SODIUM
     Indication: Epilepsy
     Dosage: DAILY DOSE: 80 MILLIGRAM
     Route: 048
     Dates: start: 20240919
  8. VALPROATE SODIUM [Suspect]
     Active Substance: VALPROATE SODIUM
     Indication: Sturge-Weber syndrome
     Dosage: PROGRESSIVE DOSAGE UP TO 21.5 MG/KG/DAY SINCE 10/04?DAILY DOSE: 21.5 MILLIGRAM/KG
     Route: 048
     Dates: start: 20241004
  9. VALPROATE SODIUM [Suspect]
     Active Substance: VALPROATE SODIUM
     Indication: Epilepsy
     Dosage: PROGRESSIVE DOSAGE UP TO 21.5 MG/KG/DAY SINCE 10/04?DAILY DOSE: 21.5 MILLIGRAM/KG
     Route: 048
     Dates: start: 20241004
  10. VALPROATE SODIUM [Suspect]
     Active Substance: VALPROATE SODIUM
     Indication: Sturge-Weber syndrome
     Dosage: INCREASED DOSAGE ?DAILY DOSE: 27 MILLIGRAM/KG
     Route: 048
  11. VALPROATE SODIUM [Suspect]
     Active Substance: VALPROATE SODIUM
     Indication: Epilepsy
     Dosage: INCREASED DOSAGE ?DAILY DOSE: 27 MILLIGRAM/KG
     Route: 048
  12. CHOLECALCIFEROL [Concomitant]
     Active Substance: CHOLECALCIFEROL

REACTIONS (8)
  - Bradycardia [Recovered/Resolved]
  - Bradypnoea [Recovered/Resolved]
  - Hypoglycaemia [Recovered/Resolved]
  - Somnolence [Recovered/Resolved]
  - Salivary hypersecretion [Recovered/Resolved]
  - Constipation [Recovered/Resolved]
  - Hypercapnia [Recovered/Resolved]
  - Rhinovirus infection [Recovered/Resolved]

NARRATIVE: CASE EVENT DATE: 20241027
